FAERS Safety Report 10978324 (Version 1)
Quarter: 2015Q1

REPORT INFORMATION
  Report Type: Spontaneous
  Country: None (occurrence: None)
  Receive Date: 20150331
  Receipt Date: 20150331
  Transmission Date: 20150721
  Serious: Yes (Other)
  Sender: FDA-Public Use
  Company Number: 2015030066

PATIENT
  Age: 89 Year
  Sex: Female

DRUGS (6)
  1. BELOC (METOPROLOL SUCCINATE) [Concomitant]
  2. FEMARA [Concomitant]
     Active Substance: LETROZOLE
  3. ELTROXIN (LEVOTHYROXINE SODIUM) [Concomitant]
     Active Substance: LEVOTHYROXINE
  4. ASPIRIN CARDIO (ACETYLSALICYLIC ACID) [Concomitant]
     Active Substance: ASPIRIN
  5. TOREM (TORASEMIDE) [Suspect]
     Active Substance: TORSEMIDE
     Indication: CARDIAC FAILURE CHRONIC
     Dosage: 5 MG (5 MG, 1 IN 1 D), ORAL
     Route: 048
     Dates: start: 201412, end: 20141224
  6. NEXIUM I.V. [Concomitant]
     Active Substance: ESOMEPRAZOLE SODIUM

REACTIONS (7)
  - Atrial fibrillation [None]
  - Urticaria [None]
  - Rash pruritic [None]
  - Toxic skin eruption [None]
  - Cardiac failure [None]
  - Eosinophilia [None]
  - Rash maculo-papular [None]

NARRATIVE: CASE EVENT DATE: 201412
